FAERS Safety Report 23245903 (Version 7)
Quarter: 2024Q2

REPORT INFORMATION
  Report Type: Report from Study
  Country: CA (occurrence: CA)
  Receive Date: 20231130
  Receipt Date: 20240508
  Transmission Date: 20240716
  Serious: Yes (Other)
  Sender: FDA-Public Use
  Company Number: CA-002147023-NVSC2021CA037979

PATIENT
  Age: 57 Year
  Sex: Female

DRUGS (11)
  1. COSENTYX [Suspect]
     Active Substance: SECUKINUMAB
     Indication: Psoriatic arthropathy
     Dosage: 150 MG, QMO
     Route: 058
     Dates: start: 20210129
  2. COSENTYX [Suspect]
     Active Substance: SECUKINUMAB
     Indication: Ankylosing spondylitis
     Dosage: 300 MG, Q3W
     Route: 058
  3. COSENTYX [Suspect]
     Active Substance: SECUKINUMAB
     Dosage: 300 MG, Q3W
     Route: 058
  4. COSENTYX [Suspect]
     Active Substance: SECUKINUMAB
     Dosage: 300 MG, QW
     Route: 058
     Dates: start: 20210205
  5. COSENTYX [Suspect]
     Active Substance: SECUKINUMAB
     Dosage: 300 MG, QMO
     Route: 058
  6. COSENTYX [Suspect]
     Active Substance: SECUKINUMAB
     Dosage: UNK (ONLY INJECTED HALF DOSE)
     Route: 065
     Dates: start: 20221207
  7. COSENTYX [Suspect]
     Active Substance: SECUKINUMAB
     Dosage: 300 MG, Q3W
     Route: 058
     Dates: start: 2023
  8. IBUPROFEN [Concomitant]
     Active Substance: IBUPROFEN
     Indication: Product used for unknown indication
     Dosage: 4 DOSAGE FORM, QD
     Route: 048
  9. NAPROXEN [Concomitant]
     Active Substance: NAPROXEN
     Indication: Product used for unknown indication
     Dosage: 3 DOSAGE FORM, PRN
     Route: 048
  10. IBUPROFEN\METHOCARBAMOL [Concomitant]
     Active Substance: IBUPROFEN\METHOCARBAMOL
     Indication: Product used for unknown indication
     Dosage: UNK UNK, PRN
     Route: 048
  11. METHOTREXATE SODIUM [Concomitant]
     Active Substance: METHOTREXATE SODIUM
     Indication: Product used for unknown indication
     Dosage: 1 DOSAGE FORM, QW
     Route: 058
     Dates: start: 202005

REACTIONS (24)
  - Lower respiratory tract infection [Recovering/Resolving]
  - Paraesthesia [Unknown]
  - Pruritus [Unknown]
  - Pain [Unknown]
  - Tooth abscess [Unknown]
  - Arthralgia [Unknown]
  - Injection site haematoma [Unknown]
  - Injection site bruising [Unknown]
  - Joint stiffness [Unknown]
  - Malaise [Unknown]
  - Musculoskeletal stiffness [Unknown]
  - Swelling [Unknown]
  - Nasopharyngitis [Recovering/Resolving]
  - Hepatic enzyme abnormal [Unknown]
  - Psoriasis [Unknown]
  - Skin atrophy [Unknown]
  - Musculoskeletal deformity [Unknown]
  - Musculoskeletal disorder [Unknown]
  - Injection site mass [Unknown]
  - Injection site pain [Unknown]
  - Injection site haemorrhage [Unknown]
  - Device issue [Unknown]
  - Incorrect dose administered [Unknown]
  - Off label use [Unknown]

NARRATIVE: CASE EVENT DATE: 20210211
